FAERS Safety Report 8860362 (Version 1)
Quarter: 2012Q4

REPORT INFORMATION
  Report Type: 
  Country: US (occurrence: US)
  Receive Date: 20121025
  Receipt Date: 20121025
  Transmission Date: 20130627
  Serious: Yes (Death)
  Sender: FDA-Public Use
  Company Number: PHHY2011US42471

PATIENT
  Age: 72 None
  Sex: Male

DRUGS (2)
  1. GLEEVEC [Suspect]
     Indication: CHRONIC MYELOID LEUKAEMIA
     Dosage: 400 mg, QD
     Route: 048
     Dates: start: 20070918
  2. GLEEVEC [Suspect]
     Dosage: 400 mg, QD
     Route: 048

REACTIONS (3)
  - Death [Fatal]
  - Hyperplasia [Not Recovered/Not Resolved]
  - Paraesthesia [Not Recovered/Not Resolved]
